FAERS Safety Report 10062126 (Version 1)
Quarter: 2014Q2

REPORT INFORMATION
  Report Type: Spontaneous
  Country: US (occurrence: US)
  Receive Date: 20140407
  Receipt Date: 20140407
  Transmission Date: 20141212
  Serious: No
  Sender: FDA-Public Use
  Company Number: US-009507513-1403USA009655

PATIENT
  Sex: Male

DRUGS (2)
  1. CHLOR-TRIMETON ALLERGY 4 HOUR TABLETS [Suspect]
     Indication: HYPERSENSITIVITY
     Dosage: 0.5 DF, UNKNOWN
     Route: 048
  2. CHLOR-TRIMETON ALLERGY 4 HOUR TABLETS [Suspect]
     Dosage: 1 DF, UNKNOWN
     Route: 048

REACTIONS (2)
  - Somnolence [Unknown]
  - Underdose [Unknown]
